FAERS Safety Report 8849172 (Version 2)
Quarter: 2012Q4

REPORT INFORMATION
  Report Type: 
  Country: NO (occurrence: NO)
  Receive Date: 20121019
  Receipt Date: 20121123
  Transmission Date: 20130627
  Serious: Yes (Death, Other)
  Sender: FDA-Public Use
  Company Number: PHHY2012NO091860

PATIENT

DRUGS (2)
  1. CICLOSPORIN [Suspect]
     Indication: PROPHYLAXIS AGAINST TRANSPLANT REJECTION
  2. PREDNISOLONE [Suspect]
     Indication: IMMUNOSUPPRESSION
     Dosage: 7.5 mg, UNK

REACTIONS (2)
  - Leukaemia recurrent [Fatal]
  - Lung transplant rejection [Unknown]
